FAERS Safety Report 13254907 (Version 1)
Quarter: 2017Q1

REPORT INFORMATION
  Report Type: Spontaneous
  Country: US (occurrence: US)
  Receive Date: 20170217
  Receipt Date: 20170217
  Transmission Date: 20170428
  Serious: Yes (Disabling)
  Sender: FDA-Public Use
  Company Number: None

PATIENT
  Age: 15 Year
  Sex: Female
  Weight: 52.2 kg

DRUGS (2)
  1. OSELTAMIVIR [Suspect]
     Active Substance: OSELTAMIVIR
     Indication: INFLUENZA
     Dosage: ?          QUANTITY:10 CAPSULE(S);?
     Route: 048
     Dates: start: 20170121, end: 20170127
  2. PREVACID [Concomitant]
     Active Substance: LANSOPRAZOLE

REACTIONS (10)
  - Dizziness [None]
  - Nausea [None]
  - Weight decreased [None]
  - Vomiting [None]
  - Abdominal pain [None]
  - Hypophagia [None]
  - Abdominal pain upper [None]
  - Dyspnoea [None]
  - Diarrhoea [None]
  - Disturbance in attention [None]

NARRATIVE: CASE EVENT DATE: 20170124
